FAERS Safety Report 7242993-3 (Version None)
Quarter: 2011Q1

REPORT INFORMATION
  Report Type: 
  Country: None (occurrence: None)
  Receive Date: 20110125
  Receipt Date: 20110120
  Transmission Date: 20110831
  Serious: Yes (Hospitalization)
  Sender: FDA-Public Use
  Company Number: JP-JNJFOC-20101204409

PATIENT
  Sex: Male

DRUGS (8)
  1. AMBROL [Concomitant]
     Indication: LUNG NEOPLASM MALIGNANT
     Route: 048
  2. DUROTEP MT [Suspect]
     Indication: CANCER PAIN
     Route: 062
  3. UNKNOWN MEDICATION [Suspect]
     Indication: LUNG NEOPLASM MALIGNANT
  4. MORPHINE [Concomitant]
     Indication: CANCER PAIN
     Route: 048
  5. URSO 250 [Concomitant]
     Indication: LUNG NEOPLASM MALIGNANT
     Route: 048
  6. MAGMITT [Concomitant]
     Indication: LUNG NEOPLASM MALIGNANT
     Route: 048
  7. BIO THREE [Concomitant]
     Indication: LUNG NEOPLASM MALIGNANT
     Route: 048
  8. ALTAT [Concomitant]
     Indication: LUNG NEOPLASM MALIGNANT
     Route: 048

REACTIONS (1)
  - DELIRIUM [None]
